FAERS Safety Report 24601780 (Version 1)
Quarter: 2024Q4

REPORT INFORMATION
  Report Type: Spontaneous
  Country: BH (occurrence: BH)
  Receive Date: 20241111
  Receipt Date: 20241111
  Transmission Date: 20250114
  Serious: Yes (Death, Life-Threatening, Hospitalization, Other)
  Sender: JUBILANT
  Company Number: None

PATIENT
  Age: 78 Year
  Sex: Male

DRUGS (2)
  1. RISPERIDONE [Suspect]
     Active Substance: RISPERIDONE
     Indication: Delusional disorder, unspecified type
     Dosage: UNK,  UNK
     Route: 065
  2. PROCYCLIDINE [Suspect]
     Active Substance: PROCYCLIDINE
     Indication: Delusional disorder, unspecified type
     Dosage: UNK, UNK

REACTIONS (7)
  - Intestinal pseudo-obstruction [Fatal]
  - Renal impairment [Fatal]
  - Hypocalcaemia [Fatal]
  - Pneumonia [Fatal]
  - Cardio-respiratory arrest [Fatal]
  - Parkinsonism [Fatal]
  - Hypomagnesaemia [Fatal]
